FAERS Safety Report 14603592 (Version 1)
Quarter: 2018Q1

REPORT INFORMATION
  Report Type: Spontaneous
  Country: GB (occurrence: GB)
  Receive Date: 20180306
  Receipt Date: 20180306
  Transmission Date: 20180509
  Serious: Yes (Disabling, Other)
  Sender: FDA-Public Use
  Company Number: GB-JNJFOC-20180235864

PATIENT
  Age: 78 Year
  Sex: Female
  Weight: 73.02 kg

DRUGS (5)
  1. CITRIC ACID MONOHYDRATE [Suspect]
     Active Substance: CITRIC ACID MONOHYDRATE
     Indication: COUGH
     Route: 065
     Dates: start: 20161220
  2. LEVOTHYROXINE SODIUM. [Concomitant]
     Active Substance: LEVOTHYROXINE SODIUM
     Route: 065
  3. CO-DYDRAMOL [Concomitant]
     Active Substance: ACETAMINOPHEN\DIHYDROCODEINE
     Route: 065
  4. TROSPIUM [Concomitant]
     Active Substance: TROSPIUM
     Route: 065
  5. OVEX [Suspect]
     Active Substance: MEBENDAZOLE
     Indication: HELMINTHIC INFECTION
     Route: 048
     Dates: start: 20161201

REACTIONS (3)
  - Dizziness [Unknown]
  - Heart rate increased [Unknown]
  - Asthenia [Unknown]

NARRATIVE: CASE EVENT DATE: 20161201
